FAERS Safety Report 6338992-6 (Version None)
Quarter: 2009Q3

REPORT INFORMATION
  Report Type: 
  Country: None (occurrence: None)
  Receive Date: 20090903
  Receipt Date: 20090825
  Transmission Date: 20100115
  Serious: Yes (Hospitalization)
  Sender: FDA-Public Use
  Company Number: PHHY2009JP15132

PATIENT
  Sex: Male

DRUGS (16)
  1. ZOMETA [Suspect]
     Indication: METASTASES TO BONE
     Dosage: 4 MG, QMO
     Route: 042
     Dates: start: 20060925, end: 20090306
  2. ZOMETA [Suspect]
     Indication: PROSTATE CANCER
  3. DECADRON [Concomitant]
     Indication: METASTASES TO BONE
     Dosage: 1 MG
     Route: 048
     Dates: start: 20070525, end: 20090415
  4. PURSENNID [Concomitant]
     Indication: CONSTIPATION
     Dosage: 12 MG
     Route: 048
     Dates: start: 20090421
  5. ZANTAC [Concomitant]
     Indication: PROPHYLAXIS AGAINST GASTROINTESTINAL ULCER
     Dosage: 150 MG
     Route: 048
  6. MAGMITT [Concomitant]
     Indication: CONSTIPATION
     Dosage: 990 MG
     Route: 048
     Dates: start: 20090421
  7. MUCODYNE [Concomitant]
     Indication: PRODUCTIVE COUGH
     Dosage: 500 MG
     Route: 048
  8. LOXONIN [Concomitant]
     Dosage: 180 MG
     Route: 048
  9. NORVASC [Concomitant]
     Indication: HYPERTENSION
     Dosage: 10 MG
     Route: 048
  10. SELOKEN [Concomitant]
     Indication: HYPERTENSION
     Dosage: 80 MG
     Route: 048
  11. RENIVACE [Concomitant]
     Indication: HYPERTENSION
     Dosage: 5 MG
     Route: 048
  12. DUROTEP JANSSEN [Concomitant]
     Indication: BONE PAIN
     Dosage: UNK
     Dates: start: 20070401
  13. SOLU-CORTEF [Concomitant]
     Indication: PROSTATE CANCER
     Dosage: 200 MG
     Dates: start: 20060925
  14. SOLU-CORTEF [Concomitant]
     Indication: METASTASES TO BONE
  15. CEFAZOLIN [Concomitant]
     Dosage: 2G DAILY
     Route: 041
  16. IRRIGATING SOLUTIONS [Concomitant]

REACTIONS (17)
  - BASOPHIL COUNT INCREASED [None]
  - BLOOD CREATININE INCREASED [None]
  - BLOOD UREA INCREASED [None]
  - INCISIONAL DRAINAGE [None]
  - LOCAL SWELLING [None]
  - LYMPHOCYTE COUNT DECREASED [None]
  - MONOCYTE COUNT INCREASED [None]
  - MOUTH ULCERATION [None]
  - NEUTROPHIL COUNT INCREASED [None]
  - OSTEONECROSIS [None]
  - PURULENT DISCHARGE [None]
  - STOMATITIS [None]
  - SUBCUTANEOUS ABSCESS [None]
  - SWELLING [None]
  - SWELLING FACE [None]
  - TOOTH INFECTION [None]
  - WHITE BLOOD CELL COUNT INCREASED [None]
